FAERS Safety Report 9266042 (Version 2)
Quarter: 2013Q4

REPORT INFORMATION
  Report Type: Spontaneous
  Country: US (occurrence: US)
  Receive Date: 20130501
  Receipt Date: 20131004
  Transmission Date: 20140711
  Serious: Yes (Hospitalization)
  Sender: FDA-Public Use
  Company Number: US-B.I. PHARMACEUTICALS,INC./RIDGEFIELD-2013-BI-12167BP

PATIENT
  Age: 60 Year
  Sex: Female
  Weight: 77.11 kg

DRUGS (10)
  1. PRADAXA [Suspect]
     Indication: ANTICOAGULANT THERAPY
     Dosage: 300 MG
     Dates: start: 20101215, end: 20110126
  2. PRADAXA [Suspect]
     Indication: ATRIAL FIBRILLATION
  3. METOPROLOL [Concomitant]
     Indication: ATRIAL FIBRILLATION
     Dosage: 50 MG
  4. ABILIFY [Concomitant]
     Dosage: 2.5 MG
  5. PROZAC [Concomitant]
     Dosage: 20 MG
  6. LAMICTAL [Concomitant]
     Dosage: 200 MG
  7. OXYCONTIN [Concomitant]
  8. PERCOCET [Concomitant]
  9. TRAZODONE [Concomitant]
     Dosage: 100 MG
  10. AMBIEN [Concomitant]
     Dosage: 12.5 MG

REACTIONS (2)
  - Gastrointestinal haemorrhage [Unknown]
  - Anaemia [Unknown]
